FAERS Safety Report 24997708 (Version 2)
Quarter: 2025Q1

REPORT INFORMATION
  Report Type: Spontaneous
  Country: DE (occurrence: DE)
  Receive Date: 20250222
  Receipt Date: 20250225
  Transmission Date: 20250409
  Serious: No
  Sender: ABBVIE
  Company Number: DE-ABBVIE-6137127

PATIENT

DRUGS (1)
  1. RINVOQ [Suspect]
     Active Substance: UPADACITINIB
     Indication: Dermatitis atopic
     Route: 048

REACTIONS (1)
  - Therapeutic product effect incomplete [Unknown]
